FAERS Safety Report 16099733 (Version 1)
Quarter: 2019Q1

REPORT INFORMATION
  Report Type: Spontaneous
  Country: US (occurrence: US)
  Receive Date: 20190321
  Receipt Date: 20190321
  Transmission Date: 20190418
  Serious: Yes (Other)
  Sender: FDA-Public Use
  Company Number: US-PFIZER INC-2019118792

PATIENT
  Age: 63 Year
  Sex: Female

DRUGS (64)
  1. LIPITOR [Suspect]
     Active Substance: ATORVASTATIN CALCIUM
     Dosage: UNK
  2. JAKAFI [Interacting]
     Active Substance: RUXOLITINIB
     Dosage: 20 MG, UNK
     Route: 048
     Dates: start: 20170823, end: 20171022
  3. IRON [Concomitant]
     Active Substance: IRON
     Dosage: 27 MG, UNK
     Dates: start: 20170830
  4. PROMETHAZINE [Concomitant]
     Active Substance: PROMETHAZINE\PROMETHAZINE HYDROCHLORIDE
     Dosage: 25 MG, UNK
     Dates: start: 20170706, end: 20171122
  5. OXYCODONE [Concomitant]
     Active Substance: OXYCODONE
     Dosage: 5 MG, UNK
     Dates: start: 20171215, end: 20180213
  6. OXYCODONE [Concomitant]
     Active Substance: OXYCODONE
     Dosage: 5 MG, UNK
     Dates: start: 20171116, end: 20180115
  7. CARISOPRODOL. [Concomitant]
     Active Substance: CARISOPRODOL
     Dosage: 350 MG, UNK
     Dates: start: 20170814, end: 20171013
  8. NITROFURANTIN [Concomitant]
     Active Substance: NITROFURANTOIN
     Dosage: 100 MG, UNK
     Dates: start: 20180102, end: 20180130
  9. CIPROFLOXACIN. [Concomitant]
     Active Substance: CIPROFLOXACIN
     Dosage: 500 MG, UNK
     Dates: start: 20171106, end: 20171120
  10. MEDROL [Concomitant]
     Active Substance: METHYLPREDNISOLONE
     Dosage: 4 MG, UNK
     Dates: start: 20180126
  11. JAKAFI [Interacting]
     Active Substance: RUXOLITINIB
     Dosage: 20 MG, UNK
     Dates: start: 201804
  12. MELATONIN [Concomitant]
     Active Substance: MELATONIN
     Dosage: UNK
     Dates: start: 20170830
  13. VITAMIN B12 [Concomitant]
     Active Substance: CYANOCOBALAMIN
     Dosage: 100 UG, UNK
     Dates: start: 20170830
  14. VITAMIN C [Concomitant]
     Active Substance: ASCORBIC ACID
     Dosage: 100 MG, UNK
     Dates: start: 20170830
  15. OXYCODONE [Concomitant]
     Active Substance: OXYCODONE
     Dosage: 5 MG, UNK
     Dates: start: 20171202
  16. LOSARTAN. [Concomitant]
     Active Substance: LOSARTAN
     Dosage: 25 MG, UNK
     Dates: start: 20171205, end: 20180204
  17. SOMA [Concomitant]
     Active Substance: CARISOPRODOL
     Dosage: 350 MG, UNK
     Dates: start: 20171202
  18. JAKAFI [Interacting]
     Active Substance: RUXOLITINIB
     Dosage: 20 MG, 2X/DAY
     Route: 048
     Dates: start: 20170901
  19. MULTIVITAMIN [VITAMINS NOS] [Concomitant]
     Dosage: UNK
     Dates: start: 20170830
  20. MAGNESIUM [Concomitant]
     Active Substance: MAGNESIUM
     Dosage: 25 MG, UNK
     Dates: start: 20170830
  21. PROMETHAZINE [Concomitant]
     Active Substance: PROMETHAZINE\PROMETHAZINE HYDROCHLORIDE
     Dosage: 25 MG, UNK
     Dates: start: 20171202
  22. LIOTHYRONINE [Concomitant]
     Active Substance: LIOTHYRONINE
     Dosage: UNK
  23. CARISOPRODOL. [Concomitant]
     Active Substance: CARISOPRODOL
     Dosage: 350 MG, UNK
     Dates: start: 20180110, end: 20180311
  24. JAKAFI [Interacting]
     Active Substance: RUXOLITINIB
     Indication: MYELOFIBROSIS
     Dosage: 20 MG, 2X/DAY
     Route: 048
     Dates: start: 20170901
  25. AMLACTIN [Concomitant]
     Active Substance: AMMONIUM LACTATE
     Dosage: UNK
     Dates: start: 20170830
  26. MUPIROCIN. [Concomitant]
     Active Substance: MUPIROCIN
     Dosage: UNK
     Dates: start: 20171102, end: 20171122
  27. ZINC. [Concomitant]
     Active Substance: ZINC
     Dosage: 66 MG, UNK
     Dates: start: 20170830
  28. ACYCLOVIR [ACICLOVIR] [Concomitant]
     Active Substance: ACYCLOVIR
     Dosage: 400 MG, UNK
     Dates: start: 20170220, end: 20171010
  29. OXYCODONE [Concomitant]
     Active Substance: OXYCODONE
     Dosage: 5 MG, UNK
     Dates: start: 20170918, end: 20171117
  30. OXYCODONE [Concomitant]
     Active Substance: OXYCODONE
     Dosage: 5 MG, UNK
     Dates: start: 20171017, end: 20171216
  31. NITROFURANTIN [Concomitant]
     Active Substance: NITROFURANTOIN
     Dosage: 100 MG, UNK
     Dates: start: 20171223, end: 20180106
  32. NITROFURANTIN [Concomitant]
     Active Substance: NITROFURANTOIN
     Dosage: 100 MG, UNK
     Dates: start: 20171120, end: 20171204
  33. CIPROFLOXACIN. [Concomitant]
     Active Substance: CIPROFLOXACIN
     Dosage: 500 MG, UNK
     Dates: start: 20171220, end: 20180129
  34. CIPROFLOXACIN. [Concomitant]
     Active Substance: CIPROFLOXACIN
     Dosage: 500 MG, UNK
     Dates: start: 20171102, end: 20171116
  35. CIPROFLOXACIN. [Concomitant]
     Active Substance: CIPROFLOXACIN
     Dosage: 500 MG, UNK
     Dates: start: 20171101, end: 20171115
  36. CORTIZONE 10 [Concomitant]
     Active Substance: HYDROCORTISONE
     Dosage: UNK
     Dates: start: 20170830
  37. PROMETHAZINE [Concomitant]
     Active Substance: PROMETHAZINE\PROMETHAZINE HYDROCHLORIDE
     Dosage: 25 MG, UNK
     Dates: start: 20171205, end: 20171225
  38. CARISOPRODOL. [Concomitant]
     Active Substance: CARISOPRODOL
     Dosage: 350 MG, UNK
     Dates: start: 20171017, end: 20171216
  39. FLUOXETINE [Concomitant]
     Active Substance: FLUOXETINE HYDROCHLORIDE
     Dosage: 20 MG, UNK
     Dates: start: 20171202
  40. LEVOTHYROXINE. [Concomitant]
     Active Substance: LEVOTHYROXINE
     Dosage: 88 UG, UNK
     Dates: start: 20170720, end: 20180116
  41. NITROFURANTIN [Concomitant]
     Active Substance: NITROFURANTOIN
     Dosage: 100 MG, UNK
     Dates: start: 20180102, end: 20180116
  42. FLUCONAZOLE. [Concomitant]
     Active Substance: FLUCONAZOLE
     Dosage: 150 MG, UNK
     Dates: start: 20171223, end: 20180119
  43. FLUCONAZOLE. [Concomitant]
     Active Substance: FLUCONAZOLE
     Dosage: 150 MG, UNK
     Dates: start: 20171218, end: 20171226
  44. METHYLPRED [Concomitant]
     Active Substance: METHYLPREDNISOLONE
     Dosage: 4 MG, UNK
     Dates: start: 20180124, end: 20180205
  45. JAKAFI [Interacting]
     Active Substance: RUXOLITINIB
     Dosage: 20 MG, 2X/DAY
     Route: 048
     Dates: start: 20170831
  46. CRANBERRY. [Concomitant]
     Active Substance: CRANBERRY
     Dosage: 450 MG, UNK
     Dates: start: 20170830
  47. BENEFIBER [DEXTRIN] [Concomitant]
     Dosage: UNK
     Dates: start: 20170830
  48. OXYCODONE [Concomitant]
     Active Substance: OXYCODONE
     Dosage: 5 MG, UNK
     Dates: start: 20160118, end: 20160319
  49. CARISOPRODOL. [Concomitant]
     Active Substance: CARISOPRODOL
     Dosage: 350 MG, UNK
     Dates: start: 20170918, end: 20171117
  50. FLUOXETINE [Concomitant]
     Active Substance: FLUOXETINE HYDROCHLORIDE
     Dosage: 20 MG, UNK
     Dates: start: 20170501, end: 20180720
  51. LEVOTHYROXINE. [Concomitant]
     Active Substance: LEVOTHYROXINE
     Dosage: 88 UG, UNK
     Dates: start: 20171202
  52. CORTISONE [Concomitant]
     Active Substance: CORTISONE\HYDROCORTISONE
     Dosage: UNK
     Dates: start: 20170830
  53. JAKAFI [Interacting]
     Active Substance: RUXOLITINIB
     Indication: POLYCYTHAEMIA VERA
     Dosage: 20 MG, UNK
     Route: 048
     Dates: start: 20170816, end: 20171015
  54. ANAGRELIDE. [Concomitant]
     Active Substance: ANAGRELIDE HYDROCHLORIDE
     Dosage: UNK
  55. OXYCODONE [Concomitant]
     Active Substance: OXYCODONE
     Dosage: 5 MG, UNK
     Dates: start: 20170814, end: 20171013
  56. CARISOPRODOL. [Concomitant]
     Active Substance: CARISOPRODOL
     Dosage: 350 MG, UNK
     Dates: start: 20171129, end: 20180127
  57. JAKAFI [Interacting]
     Active Substance: RUXOLITINIB
     Dosage: 20 MG, 2X/DAY
     Route: 048
     Dates: start: 20170901
  58. JAKAFI [Interacting]
     Active Substance: RUXOLITINIB
     Dosage: 20 MG, 2X/DAY
     Route: 048
     Dates: start: 201803
  59. METRONIDAZOLE. [Concomitant]
     Active Substance: METRONIDAZOLE
     Dosage: UNK
     Dates: start: 20170830
  60. VITAMIN D3 [Concomitant]
     Active Substance: CHOLECALCIFEROL
     Dosage: 400 IU, UNK
     Dates: start: 20170830
  61. ACYCLOVIR [ACICLOVIR] [Concomitant]
     Active Substance: ACYCLOVIR
     Dosage: 400 MG, UNK
     Dates: start: 20171229, end: 20180227
  62. FLUCONAZOLE. [Concomitant]
     Active Substance: FLUCONAZOLE
     Dosage: 150 MG, UNK
     Dates: start: 20171108, end: 20171116
  63. CIPROFLOXACIN. [Concomitant]
     Active Substance: CIPROFLOXACIN
     Dosage: 500 MG, UNK
     Dates: start: 20171211, end: 20171225
  64. CIPROFLOXACIN. [Concomitant]
     Active Substance: CIPROFLOXACIN
     Dosage: 500 MG, UNK
     Dates: start: 20171026, end: 20171109

REACTIONS (40)
  - Fatigue [Unknown]
  - Burning feet syndrome [Unknown]
  - Photophobia [Unknown]
  - Eczema [Unknown]
  - Drooling [Unknown]
  - Blood triglycerides increased [Unknown]
  - Immunodeficiency [Unknown]
  - Hepatomegaly [Recovering/Resolving]
  - Feeling abnormal [Unknown]
  - Dizziness [Unknown]
  - Flatulence [Unknown]
  - Low density lipoprotein increased [Unknown]
  - Headache [Recovering/Resolving]
  - Infection [Unknown]
  - Bone disorder [Unknown]
  - Urinary tract infection [Unknown]
  - Cyst [Unknown]
  - Weight increased [Unknown]
  - Epistaxis [Unknown]
  - Sensitive skin [Unknown]
  - Blood cholesterol increased [Unknown]
  - Vitamin D deficiency [Unknown]
  - Cognitive disorder [Unknown]
  - Fungal infection [Unknown]
  - Dermal cyst [Unknown]
  - Malaise [Unknown]
  - Road traffic accident [Unknown]
  - Neuralgia [Unknown]
  - Rash [Unknown]
  - Oral herpes [Unknown]
  - Nausea [Unknown]
  - Neoplasm skin [Unknown]
  - Localised infection [Unknown]
  - Photosensitivity reaction [Unknown]
  - Loss of personal independence in daily activities [Unknown]
  - Back injury [Unknown]
  - Limb injury [Unknown]
  - Splenomegaly [Recovering/Resolving]
  - Pelvic cyst [Unknown]
  - Drug interaction [Unknown]

NARRATIVE: CASE EVENT DATE: 20170901
